FAERS Safety Report 4585775-3 (Version None)
Quarter: 2005Q1

REPORT INFORMATION
  Report Type: 
  Country: None (occurrence: None)
  Receive Date: 20050128
  Receipt Date: 20050128
  Transmission Date: 20050727
  Serious: Yes (Disabling, Other)
  Sender: FDA-Public Use
  Company Number: None

PATIENT
  Age: 51 Year
  Sex: Female
  Weight: 68.0396 kg

DRUGS (1)
  1. ZICAM NO DRIP NASAL GEL COLD REMEDY ZICAM LLC/MATRIXX INITIATIVES, INC [Suspect]
     Indication: NASOPHARYNGITIS
     Dosage: ONCE DAY NASAL
     Route: 045
     Dates: start: 20041020, end: 20041021

REACTIONS (6)
  - AGEUSIA [None]
  - ANOSMIA [None]
  - EYE IRRITATION [None]
  - INFLAMMATION [None]
  - NASAL CONGESTION [None]
  - NASAL DISCOMFORT [None]
